FAERS Safety Report 5134542-0 (Version None)
Quarter: 2006Q4

REPORT INFORMATION
  Report Type: 
  Country: None (occurrence: None)
  Receive Date: 20061019
  Receipt Date: 20061010
  Transmission Date: 20070319
  Serious: Yes (Disabling)
  Sender: FDA-Public Use
  Company Number: 2006-05332

PATIENT
  Age: 54 Year
  Sex: Male

DRUGS (1)
  1. METHYLPREDNISOLONE ACETATE [Suspect]
     Indication: MULTIPLE SCLEROSIS
     Dosage: 1000 MG, DAILY, INTRAVENOUS
     Route: 042
     Dates: start: 20060101, end: 20060101

REACTIONS (1)
  - MULTIPLE SCLEROSIS [None]
